FAERS Safety Report 23891470 (Version 1)
Quarter: 2024Q2

REPORT INFORMATION
  Report Type: Spontaneous
  Country: ES (occurrence: ES)
  Receive Date: 20240523
  Receipt Date: 20240523
  Transmission Date: 20240716
  Serious: Yes (Other)
  Sender: FDA-Public Use
  Company Number: ES-BEIGENE-BGN-2024-007538

PATIENT

DRUGS (6)
  1. BRUKINSA [Suspect]
     Active Substance: ZANUBRUTINIB
     Indication: Marginal zone lymphoma recurrent
     Dosage: 4 TABLETS PER DAY
     Dates: start: 20240318, end: 20240509
  2. APIXABAN [Concomitant]
     Active Substance: APIXABAN
  3. LINAGLIPTIN [Concomitant]
     Active Substance: LINAGLIPTIN
  4. FUROSEMIDE [Concomitant]
     Active Substance: FUROSEMIDE
  5. ZOPICLONE [Concomitant]
     Active Substance: ZOPICLONE
  6. PAROXETINE [Concomitant]
     Active Substance: PAROXETINE
     Dosage: UNK

REACTIONS (2)
  - Skin necrosis [Not Recovered/Not Resolved]
  - Skin lesion [Not Recovered/Not Resolved]

NARRATIVE: CASE EVENT DATE: 20240502
